FAERS Safety Report 7605516-2 (Version None)
Quarter: 2011Q3

REPORT INFORMATION
  Report Type: 
  Country: None (occurrence: None)
  Receive Date: 20110713
  Receipt Date: 20110707
  Transmission Date: 20111222
  Serious: Yes (Hospitalization, Disabling, Other)
  Sender: FDA-Public Use
  Company Number: US-PFIZER INC-2011064320

PATIENT
  Sex: Female

DRUGS (3)
  1. CHANTIX [Suspect]
     Indication: SMOKING CESSATION THERAPY
     Dosage: STARTER PACK
     Dates: start: 20070401, end: 20070601
  2. CHANTIX [Suspect]
     Dosage: 1 MG CONTINUING PACK
     Dates: start: 20071213, end: 20080301
  3. METFORMIN [Concomitant]
     Indication: DIABETES MELLITUS
     Dosage: UNK
     Dates: start: 20060101

REACTIONS (13)
  - VISUAL IMPAIRMENT [None]
  - ANXIETY [None]
  - ANGER [None]
  - AGGRESSION [None]
  - DEPRESSION [None]
  - LOSS OF CONSCIOUSNESS [None]
  - INSOMNIA [None]
  - SUICIDAL IDEATION [None]
  - HALLUCINATION, TACTILE [None]
  - NIGHTMARE [None]
  - HALLUCINATION, VISUAL [None]
  - HALLUCINATION, AUDITORY [None]
  - PARANOIA [None]
